FAERS Safety Report 20779459 (Version 1)
Quarter: 2022Q2

REPORT INFORMATION
  Report Type: Spontaneous
  Country: CA (occurrence: CA)
  Receive Date: 20220503
  Receipt Date: 20220503
  Transmission Date: 20220720
  Serious: No
  Sender: FDA-Public Use
  Company Number: CA-TOLMAR, INC.-21CA032223

PATIENT
  Sex: Male

DRUGS (1)
  1. ELIGARD [Suspect]
     Active Substance: LEUPROLIDE ACETATE
     Indication: Prostate cancer
     Dosage: 22.5 MILLIGRAM

REACTIONS (5)
  - Wrong technique in product usage process [Unknown]
  - Intercepted product preparation error [Unknown]
  - Product dose omission issue [Unknown]
  - Device leakage [Unknown]
  - Needle issue [Unknown]
